FAERS Safety Report 23926083 (Version 1)
Quarter: 2024Q2

REPORT INFORMATION
  Report Type: Spontaneous
  Country: US (occurrence: US)
  Receive Date: 20240531
  Receipt Date: 20240531
  Transmission Date: 20240716
  Serious: No
  Sender: FDA-Public Use
  Company Number: US-RADIUS HEALTH INC.-2023US002730

PATIENT
  Sex: Female

DRUGS (1)
  1. TYMLOS [Suspect]
     Active Substance: ABALOPARATIDE
     Indication: Product used for unknown indication
     Dosage: 80 MCG
     Route: 065

REACTIONS (6)
  - Pain in jaw [Unknown]
  - Brain fog [Unknown]
  - Muscle spasms [Unknown]
  - Heart rate increased [Unknown]
  - Palpitations [Unknown]
  - Dizziness [Unknown]
